FAERS Safety Report 23256974 (Version 1)
Quarter: 2023Q4

REPORT INFORMATION
  Report Type: Spontaneous
  Country: US (occurrence: US)
  Receive Date: 20231204
  Receipt Date: 20231204
  Transmission Date: 20240110
  Serious: Yes (Other)
  Sender: FDA-Public Use
  Company Number: US-AZURITY PHARMACEUTICALS, INC.-US-2023ARB004956

PATIENT
  Age: 2 Year
  Sex: Female

DRUGS (2)
  1. ZONISADE [Suspect]
     Active Substance: ZONISAMIDE
     Indication: Seizure
     Dosage: 1 ML, QD
     Dates: start: 202309, end: 202309
  2. ZONISADE [Suspect]
     Active Substance: ZONISAMIDE
     Dosage: 2 ML, QD
     Dates: start: 2023

REACTIONS (3)
  - Seizure [Unknown]
  - Off label use [Unknown]
  - Product use issue [Unknown]

NARRATIVE: CASE EVENT DATE: 20230101
